FAERS Safety Report 25002812 (Version 1)
Quarter: 2025Q1

REPORT INFORMATION
  Report Type: Spontaneous
  Country: US (occurrence: US)
  Receive Date: 20250224
  Receipt Date: 20250224
  Transmission Date: 20250408
  Serious: No
  Sender: ELI LILLY AND COMPANY
  Company Number: US-ELI_LILLY_AND_COMPANY-US202502015914

PATIENT
  Age: 56 Year
  Sex: Female

DRUGS (1)
  1. VERZENIO [Suspect]
     Active Substance: ABEMACICLIB
     Indication: Menopausal disorder
     Dosage: 150 MG, BID
     Route: 048
     Dates: start: 20250128

REACTIONS (3)
  - Off label use [Unknown]
  - Neutropenia [Unknown]
  - Fatigue [Unknown]
